FAERS Safety Report 15751723 (Version 1)
Quarter: 2018Q4

REPORT INFORMATION
  Report Type: Spontaneous
  Country: FR (occurrence: FR)
  Receive Date: 20181221
  Receipt Date: 20181221
  Transmission Date: 20190205
  Serious: Yes (Other)
  Sender: FDA-Public Use
  Company Number: FR-RARE DISEASE THERAPEUTICS, INC.-2060489

PATIENT
  Age: 12 Month
  Sex: Male
  Weight: 9.89 kg

DRUGS (7)
  1. PURIXAN [Suspect]
     Active Substance: MERCAPTOPURINE
     Indication: ACUTE LYMPHOCYTIC LEUKAEMIA
     Route: 048
     Dates: start: 20180909
  2. CYTARABINE. [Suspect]
     Active Substance: CYTARABINE
     Route: 042
     Dates: start: 20180911
  3. VINCRISTINE (VINCRISTINE SULFATE) [Suspect]
     Active Substance: VINCRISTINE SULFATE
     Route: 042
     Dates: start: 20180726, end: 20181028
  4. ENDOXAN (CYCLOPHOSPHAMIDE MONOHYDRATE) [Suspect]
     Active Substance: CYCLOPHOSPHAMIDE
     Route: 042
     Dates: start: 20180909, end: 20181007
  5. ARACYTINE (CYTARABINE) [Suspect]
     Active Substance: CYTARABINE
     Route: 037
     Dates: start: 20180803, end: 20181019
  6. ONCASPAR [Suspect]
     Active Substance: PEGASPARGASE
     Route: 042
     Dates: start: 20180726, end: 20181021
  7. METHOTREXATE. [Suspect]
     Active Substance: METHOTREXATE
     Route: 037
     Dates: start: 20180803

REACTIONS (1)
  - Bicytopenia [Not Recovered/Not Resolved]

NARRATIVE: CASE EVENT DATE: 20181008
